FAERS Safety Report 5702826-0 (Version None)
Quarter: 2008Q2

REPORT INFORMATION
  Report Type: 
  Country: None (occurrence: None)
  Receive Date: 20080411
  Receipt Date: 20080408
  Transmission Date: 20081010
  Serious: Yes (Other)
  Sender: FDA-Public Use
  Company Number: DE-BAYER-200811559GPV

PATIENT
  Sex: Male

DRUGS (8)
  1. ULTRAVIST 150 [Suspect]
     Indication: POSITRON EMISSION TOMOGRAM
     Dosage: AS USED: 140 ML
     Route: 042
     Dates: start: 20080111, end: 20080111
  2. ASPIRIN [Concomitant]
     Dosage: TOTAL DAILY DOSE: 100 MG
  3. BISOPROLOL FUMARATE [Concomitant]
     Route: 048
  4. RAMIPRIL BETA /RAMIPRIL [Concomitant]
     Dosage: AS USED: 10 MG
     Route: 048
  5. RAMIPRIL BETA COMP / RAMIPRIL - HYDROCHLOROTHIAZID [Concomitant]
     Route: 048
  6. SIMVASTATIN AL / SIMVASTATIN [Concomitant]
     Dosage: AS USED: 20 MG
     Route: 048
  7. IRENAT / NATRIUMPERCHLORAT [Concomitant]
     Route: 048
     Dates: start: 20080111, end: 20080111
  8. 11 C-CHOLIN [Concomitant]
     Route: 042
     Dates: start: 20080111, end: 20080111

REACTIONS (4)
  - APHONIA [None]
  - DYSPNOEA [None]
  - LARYNGEAL OEDEMA [None]
  - THROAT TIGHTNESS [None]
